FAERS Safety Report 9076440 (Version 1)
Quarter: 2013Q1

REPORT INFORMATION
  Report Type: Report from Study
  Country: US (occurrence: US)
  Receive Date: 20130129
  Receipt Date: 20130129
  Transmission Date: 20140127
  Serious: No
  Sender: FDA-Public Use
  Company Number: US-ABBOTT-12P-163-0947047-00

PATIENT
  Age: 55 Year
  Sex: Female

DRUGS (7)
  1. HUMIRA 40 MG/0.8 ML PEN [Suspect]
     Indication: PSORIASIS
     Dates: start: 20100101, end: 20120527
  2. PREVACID [Concomitant]
     Indication: DYSPEPSIA
  3. BYSTOLIC [Concomitant]
     Indication: HYPERTENSION
     Dosage: DAILY
  4. SYNTHROID [Concomitant]
     Indication: HYPOTHYROIDISM
  5. SINGULAIR [Concomitant]
     Indication: HYPERSENSITIVITY
     Dosage: DAILY
  6. XYZAL [Concomitant]
     Indication: HYPERSENSITIVITY
     Dosage: DAILY
  7. ATARAX [Concomitant]
     Indication: PRURITUS

REACTIONS (3)
  - Malaise [Not Recovered/Not Resolved]
  - Sinusitis [Not Recovered/Not Resolved]
  - Pulmonary oedema [Not Recovered/Not Resolved]
